FAERS Safety Report 10242878 (Version 1)
Quarter: 2014Q2

REPORT INFORMATION
  Report Type: Spontaneous
  Country: US (occurrence: US)
  Receive Date: 20140618
  Receipt Date: 20140618
  Transmission Date: 20141212
  Serious: No
  Sender: FDA-Public Use
  Company Number: US-009507513-1406USA000983

PATIENT
  Sex: Female

DRUGS (4)
  1. REMERON [Suspect]
     Indication: DEPRESSION
     Dosage: 1/2 TABLET AT BEDTIME; STRENGTH 15 MG; 1 UNIT DOSE OF 100
     Route: 048
  2. COZAAR [Concomitant]
     Dosage: UNK
  3. ASPIRIN [Concomitant]
     Dosage: UNK
  4. ATORVASTATIN [Concomitant]
     Dosage: UNK

REACTIONS (3)
  - Restless legs syndrome [Unknown]
  - Insomnia [Not Recovered/Not Resolved]
  - Drug dose omission [Unknown]
